FAERS Safety Report 16168459 (Version 5)
Quarter: 2019Q3

REPORT INFORMATION
  Report Type: Spontaneous
  Country: US (occurrence: US)
  Receive Date: 20190408
  Receipt Date: 20190723
  Transmission Date: 20191004
  Serious: No
  Sender: FDA-Public Use
  Company Number: US-PFIZER INC-2019145773

PATIENT
  Age: 60 Year
  Sex: Female

DRUGS (1)
  1. EUCRISA [Suspect]
     Active Substance: CRISABOROLE
     Indication: PRURITUS
     Dosage: UNK, 2X/DAY (60 MG, 2%)
     Dates: start: 201902

REACTIONS (2)
  - Application site pain [Unknown]
  - Drug ineffective [Unknown]
